FAERS Safety Report 21324224 (Version 3)
Quarter: 2023Q2

REPORT INFORMATION
  Report Type: Report from Study
  Country: US (occurrence: US)
  Receive Date: 20220912
  Receipt Date: 20230512
  Transmission Date: 20230722
  Serious: Yes (Other)
  Sender: FDA-Public Use
  Company Number: US-UCBSA-2022019072

PATIENT
  Sex: Female

DRUGS (3)
  1. CERTOLIZUMAB PEGOL [Suspect]
     Active Substance: CERTOLIZUMAB PEGOL
     Indication: Rheumatoid arthritis
     Dosage: 400 MILLIGRAM, EV 4 WEEKS
     Route: 058
     Dates: start: 202204
  2. CERTOLIZUMAB PEGOL [Suspect]
     Active Substance: CERTOLIZUMAB PEGOL
     Indication: Arthritis enteropathic
     Dosage: 400 MILLIGRAM, EV 4 WEEKS
     Dates: start: 20220101
  3. STELARA [Concomitant]
     Active Substance: USTEKINUMAB
     Indication: Product used for unknown indication
     Dosage: UNK

REACTIONS (8)
  - Rheumatoid arthritis [Unknown]
  - Crohn^s disease [Unknown]
  - Clostridium difficile infection [Unknown]
  - Colitis [Unknown]
  - Pain in extremity [Unknown]
  - Product use issue [Unknown]
  - Product use in unapproved indication [Unknown]
  - Drug ineffective [Unknown]
